FAERS Safety Report 22155578 (Version 1)
Quarter: 2023Q1

REPORT INFORMATION
  Report Type: Spontaneous
  Country: US (occurrence: US)
  Receive Date: 20230330
  Receipt Date: 20230330
  Transmission Date: 20230417
  Serious: No
  Sender: FDA-Public Use
  Company Number: US-009507513-2303USA002103

PATIENT
  Age: 39 Year
  Sex: Male

DRUGS (10)
  1. TRUSOPT [Suspect]
     Active Substance: DORZOLAMIDE HYDROCHLORIDE
     Indication: Uveitic glaucoma
     Dosage: THREE TIMES A DAY IN BOTH EYES
     Route: 061
  2. TRUSOPT [Suspect]
     Active Substance: DORZOLAMIDE HYDROCHLORIDE
     Indication: Angle closure glaucoma
  3. BRIMONIDINE TARTRATE\TIMOLOL MALEATE [Concomitant]
     Active Substance: BRIMONIDINE TARTRATE\TIMOLOL MALEATE
     Dosage: THREE TIMES A DAY IN BOTH EYES
     Route: 061
  4. ACETAZOLAMIDE [Concomitant]
     Active Substance: ACETAZOLAMIDE
     Dosage: 500 MG TWICE A DAY
     Route: 048
  5. CYCLOPENTOLATE [Concomitant]
     Active Substance: CYCLOPENTOLATE
     Dosage: THREE TIMES A DAY IN BOTH EYES
  6. PREDNISOLONE ACETATE [Concomitant]
     Active Substance: PREDNISOLONE ACETATE
     Dosage: FOUR TIMES A DAY IN BOTH EYES
     Route: 061
  7. AMLODIPINE BESYLATE [Concomitant]
     Active Substance: AMLODIPINE BESYLATE
     Dosage: 10 MG DAILY
  8. FOLIC ACID [Concomitant]
     Active Substance: FOLIC ACID
     Dosage: 1 MG DAILY
  9. HYDROCHLOROTHIAZIDE [Concomitant]
     Active Substance: HYDROCHLOROTHIAZIDE
     Dosage: 25 MG DAILY
  10. PREDNISONE [Concomitant]
     Active Substance: PREDNISONE
     Dosage: 10 MG DAILY

REACTIONS (1)
  - Product use in unapproved indication [Unknown]
